FAERS Safety Report 7792587-6 (Version None)
Quarter: 2011Q4

REPORT INFORMATION
  Report Type: 
  Country: None (occurrence: None)
  Receive Date: 20111003
  Receipt Date: 20110920
  Transmission Date: 20120403
  Serious: Yes (Hospitalization, Other)
  Sender: FDA-Public Use
  Company Number: US-BAYER-2011-042494

PATIENT
  Age: 18 Year
  Sex: Female

DRUGS (8)
  1. CLARITIN [Concomitant]
     Dosage: UNK
     Route: 048
     Dates: start: 20090318
  2. ALBUTEROL [Concomitant]
     Dosage: UNK
     Route: 055
     Dates: start: 20090318
  3. YAZ [Suspect]
     Indication: CONTRACEPTION
     Dosage: UNK
     Dates: start: 20080101, end: 20090101
  4. TYLENOL-500 [Concomitant]
     Dosage: 1000 MG, UNK
     Route: 048
     Dates: start: 20090515
  5. TAMIFLU [Concomitant]
     Dosage: 75 MG, UNK
     Route: 048
     Dates: start: 20090223
  6. PHENERGAN HCL [Concomitant]
     Dosage: 12.5 MG, UNK
     Route: 030
     Dates: start: 20090515
  7. RITALIN [Concomitant]
     Dosage: 10 MG, UNK
     Route: 048
     Dates: start: 20090318
  8. AMOXI [Concomitant]
     Dosage: 500 MG, UNK
     Route: 048
     Dates: start: 20090515

REACTIONS (3)
  - PAIN [None]
  - CHOLECYSTITIS CHRONIC [None]
  - GALLBLADDER DISORDER [None]
